FAERS Safety Report 7273300-8 (Version None)
Quarter: 2011Q1

REPORT INFORMATION
  Report Type: 
  Country: None (occurrence: None)
  Receive Date: 20110203
  Receipt Date: 20101111
  Transmission Date: 20110831
  Serious: No
  Sender: FDA-Public Use
  Company Number: US-ABBOTT-10P-163-0685367-00

PATIENT
  Age: 40 Year
  Sex: Male

DRUGS (1)
  1. SYNTHROID [Suspect]
     Indication: HYPOTHYROIDISM

REACTIONS (3)
  - BLOOD THYROID STIMULATING HORMONE INCREASED [None]
  - FEELING ABNORMAL [None]
  - TREATMENT NONCOMPLIANCE [None]
